FAERS Safety Report 23075759 (Version 1)
Quarter: 2023Q4

REPORT INFORMATION
  Report Type: Spontaneous
  Country: US (occurrence: None)
  Receive Date: 20231017
  Receipt Date: 20231017
  Transmission Date: 20240110
  Serious: No
  Sender: FDA-Public Use
  Company Number: None

PATIENT
  Age: 71 Year
  Sex: Male
  Weight: 109.32 kg

DRUGS (1)
  1. TREMFYA [Suspect]
     Active Substance: GUSELKUMAB
     Indication: Psoriatic arthropathy
     Dosage: FREQUENCY : AS DIRECTED;?INJECT 100MG SUBCUTANEOUSLY AT WEEK 0 AND WEEK 4 AS DIRECTED.?
     Route: 058
     Dates: start: 202103

REACTIONS (2)
  - COVID-19 [None]
  - Cardiac operation [None]
